FAERS Safety Report 4833032-X (Version None)
Quarter: 2005Q4

REPORT INFORMATION
  Report Type: 
  Country: None (occurrence: None)
  Receive Date: 20051121
  Receipt Date: 20051109
  Transmission Date: 20060501
  Serious: Yes (Hospitalization, Other)
  Sender: FDA-Public Use
  Company Number: FR-BRISTOL-MYERS SQUIBB COMPANY-13176243

PATIENT
  Age: 41 Year
  Sex: Male
  Weight: 52 kg

DRUGS (5)
  1. REYATAZ [Suspect]
     Indication: HIV INFECTION
     Route: 048
     Dates: start: 20040815, end: 20050912
  2. EPIVIR [Suspect]
     Indication: HIV INFECTION
     Route: 048
     Dates: start: 20040815, end: 20050912
  3. CIALIS [Suspect]
     Route: 048
     Dates: end: 20050912
  4. VIDEX [Concomitant]
     Indication: HIV INFECTION
     Route: 048
     Dates: start: 20020615, end: 20050912
  5. NORVIR [Concomitant]
     Indication: HIV INFECTION

REACTIONS (12)
  - ASTHENIA [None]
  - CANDIDIASIS [None]
  - CYTOLYTIC HEPATITIS [None]
  - DYSPHAGIA [None]
  - HEPATIC ENZYME INCREASED [None]
  - HEPATOMEGALY [None]
  - HERPES ZOSTER [None]
  - HYPERBILIRUBINAEMIA [None]
  - JAUNDICE [None]
  - OESOPHAGITIS [None]
  - ULCER [None]
  - VOMITING [None]
